FAERS Safety Report 10290790 (Version 1)
Quarter: 2014Q3

REPORT INFORMATION
  Report Type: Spontaneous
  Country: IT (occurrence: None)
  Receive Date: 20140708
  Receipt Date: 20140708
  Transmission Date: 20150326
  Serious: Yes (Death, Hospitalization)
  Sender: FDA-Public Use
  Company Number: AUR-APL-2014-07091

PATIENT
  Age: 63 Year
  Sex: Female

DRUGS (1)
  1. CEFTRIAXONE (CEFTRIAXONE) [Suspect]
     Active Substance: CEFTRIAXONE
     Indication: PRODUCT USED FOR UNKNOWN INDICATION

REACTIONS (2)
  - Clostridium difficile colitis [None]
  - Septic shock [None]
